FAERS Safety Report 9034245 (Version 1)
Quarter: 2013Q1

REPORT INFORMATION
  Report Type: Spontaneous
  Country: CA (occurrence: CA)
  Receive Date: 20130128
  Receipt Date: 20130128
  Transmission Date: 20140127
  Serious: Yes (Hospitalization)
  Sender: FDA-Public Use
  Company Number: CA-AMGEN-US156447

PATIENT
  Age: 51 Year
  Sex: Male

DRUGS (1)
  1. ENBREL [Suspect]
     Indication: RHEUMATOID ARTHRITIS
     Dosage: 25 MG, 2 TIMES/WK
     Route: 058
     Dates: start: 20050706, end: 20051006

REACTIONS (6)
  - Pneumothorax [Unknown]
  - Dyspnoea [Unknown]
  - Influenza like illness [Unknown]
  - Incoherent [Unknown]
  - Cardiac disorder [Unknown]
  - Tachycardia [Unknown]
